FAERS Safety Report 8335654 (Version 2)
Quarter: 2014Q2

REPORT INFORMATION
  Report Type: Spontaneous
  Country: US (occurrence: None)
  Receive Date: 20111201
  Receipt Date: 20140604
  Transmission Date: 20141212
  Serious: Yes (Hospitalization)
  Sender: FDA-Public Use
  Company Number: 20110725CINRY2146

PATIENT
  Age: 29 Year
  Sex: Female
  Weight: 128.37 kg

DRUGS (10)
  1. CINRYZE [Suspect]
     Indication: HEREDITARY ANGIOEDEMA
     Dosage: (1000 IU, MONDAY AND THURSDAY), INTRAVENOUS
     Route: 042
     Dates: start: 20110125, end: 20110705
  2. CINRYZE [Suspect]
     Dosage: (1000 IU, MONDAY AND THURSDAY), INTRAVENOUS
     Route: 042
     Dates: start: 20110125, end: 20110705
  3. METHADONE HCL (METHADONE HYDROCHLORIDE) [Concomitant]
  4. PRISTIQ EXTENDED RELEASE [Concomitant]
  5. PRENATAL VITAMIN (TABLETS) [Concomitant]
  6. AMICAR [Concomitant]
  7. IMIPRAMINE HCL (IMIPRAMINE HYDROCHLORIDE) [Concomitant]
  8. LABETALOL HCL (LABETALOL HYDROCHLORIDE) [Concomitant]
  9. ONDANSETRON HCL (ONDANSETRON HYDROCHLORIDE) [Concomitant]
  10. PEPCID [Concomitant]

REACTIONS (3)
  - Hereditary angioedema [None]
  - Maternal exposure during pregnancy [None]
  - Drug dose omission [None]
